FAERS Safety Report 7020752-4 (Version None)
Quarter: 2010Q3

REPORT INFORMATION
  Report Type: 
  Country: None (occurrence: None)
  Receive Date: 20100927
  Receipt Date: 20100917
  Transmission Date: 20110219
  Serious: Yes (Other)
  Sender: FDA-Public Use
  Company Number: 2010SP049791

PATIENT
  Age: 52 Year
  Sex: Male

DRUGS (2)
  1. REMERON [Suspect]
     Indication: SLEEP DISORDER
     Dates: start: 20070101, end: 20070101
  2. REMERON [Suspect]
     Indication: SLEEP DISORDER
     Dates: start: 20100101, end: 20100101

REACTIONS (1)
  - COMPULSIVE SHOPPING [None]
